FAERS Safety Report 7571968-X (Version None)
Quarter: 2011Q2

REPORT INFORMATION
  Report Type: 
  Country: None (occurrence: None)
  Receive Date: 20110624
  Receipt Date: 20110616
  Transmission Date: 20111010
  Serious: Yes (Other)
  Sender: FDA-Public Use
  Company Number: US-US-EMD SERONO, INC.-7065763

PATIENT
  Sex: Female
  Weight: 91 kg

DRUGS (4)
  1. PROVIGIL [Concomitant]
  2. PRILOSEC [Concomitant]
  3. SANDOSTATIN [Concomitant]
  4. REBIF [Suspect]
     Indication: PRODUCT USED FOR UNKNOWN INDICATION
     Route: 058

REACTIONS (2)
  - PANCREATIC CARCINOMA [None]
  - HEPATIC NEOPLASM MALIGNANT [None]
